FAERS Safety Report 9462067 (Version 1)
Quarter: 2013Q3

REPORT INFORMATION
  Report Type: Report from Study
  Country: US (occurrence: US)
  Receive Date: 20130816
  Receipt Date: 20130816
  Transmission Date: 20140515
  Serious: Yes (Other)
  Sender: FDA-Public Use
  Company Number: US-BAYER-2013-097864

PATIENT
  Age: 65 Year
  Sex: Male

DRUGS (1)
  1. NEXAVAR [Suspect]
     Indication: HEPATIC CANCER
     Dosage: 4 X 200 MG
     Route: 048
     Dates: start: 20130208

REACTIONS (5)
  - Eating disorder [None]
  - Blood blister [None]
  - Rash pustular [None]
  - Oral mucosal blistering [None]
  - Tongue blistering [None]
